FAERS Safety Report 24193545 (Version 1)
Quarter: 2024Q3

REPORT INFORMATION
  Report Type: Spontaneous
  Country: FR (occurrence: FR)
  Receive Date: 20240809
  Receipt Date: 20240809
  Transmission Date: 20241017
  Serious: Yes (Death)
  Sender: RANBAXY
  Company Number: FR-SUN PHARMACEUTICAL INDUSTRIES LTD-2024RR-461842

PATIENT
  Age: 61 Year
  Sex: Female
  Weight: 80 kg

DRUGS (5)
  1. SERTRALINE [Suspect]
     Active Substance: SERTRALINE HYDROCHLORIDE
     Indication: Poisoning deliberate
     Dosage: 21 DOSAGE FORM, TOTAL 1
     Route: 048
     Dates: start: 20240203, end: 20240203
  2. OXAZEPAM [Suspect]
     Active Substance: OXAZEPAM
     Indication: Poisoning deliberate
     Dosage: 60 DOSAGE FORM, TOTAL 1
     Route: 048
     Dates: start: 20240203, end: 20240203
  3. TERALITHE [Suspect]
     Active Substance: LITHIUM CARBONATE
     Indication: Poisoning deliberate
     Dosage: 40 DOSAGE FORM, TOTAL 1
     Route: 048
     Dates: start: 20240203, end: 20240203
  4. AMITRIPTYLINE HYDROCHLORIDE [Suspect]
     Active Substance: AMITRIPTYLINE HYDROCHLORIDE
     Indication: Poisoning deliberate
     Dosage: 1 DOSAGE FORM, TOTAL 1, 1 FLACON
     Route: 048
     Dates: start: 20240203, end: 20240203
  5. ELIQUIS [Suspect]
     Active Substance: APIXABAN
     Indication: Poisoning deliberate
     Dosage: 40 DOSAGE FORM, TOTAL 1
     Route: 048
     Dates: start: 20240203, end: 20240203

REACTIONS (3)
  - Coma [Fatal]
  - Multiple organ dysfunction syndrome [Fatal]
  - Cardio-respiratory arrest [Fatal]

NARRATIVE: CASE EVENT DATE: 20240203
